FAERS Safety Report 9114112 (Version 1)
Quarter: 2013Q1

REPORT INFORMATION
  Report Type: Spontaneous
  Country: JP (occurrence: JP)
  Receive Date: 20130208
  Receipt Date: 20130208
  Transmission Date: 20140127
  Serious: Yes (Other)
  Sender: FDA-Public Use
  Company Number: JP-PFIZER INC-2012310275

PATIENT
  Age: 86 Year
  Sex: Female

DRUGS (12)
  1. CADUET [Suspect]
     Indication: HYPERTENSION
     Dosage: [AMLODIPINE BESLIATE 2.5 MG]/ [ATORVASTATIN CALCIUM 5 MG], 1X/DAY
     Route: 048
     Dates: start: 20121121, end: 20121205
  2. CADUET [Suspect]
     Indication: HYPERCHOLESTEROLAEMIA
  3. AMLODIN OD [Concomitant]
     Dosage: 5 MG, 1X/DAY
     Route: 048
     Dates: start: 20120523, end: 20121120
  4. THYRADIN S [Concomitant]
     Dosage: 75 UG, 1X/DAY
     Route: 048
     Dates: end: 20121121
  5. THYRADIN S [Concomitant]
     Dosage: 50 UG, 1X/DAY
     Route: 048
     Dates: start: 20121122
  6. BAYASPIRIN [Concomitant]
     Dosage: 100 MG, 1X/DAY
     Route: 048
     Dates: start: 20121023
  7. ITOROL [Concomitant]
     Dosage: 20 MG, 2X/DAY
     Route: 048
     Dates: start: 20120523
  8. TAKEPRON OD [Concomitant]
     Dosage: 15 MG, 1X/DAY
     Route: 048
     Dates: start: 20120523
  9. RIVASTACH PATCH [Concomitant]
     Dosage: 18 MG, 1X/DAY
     Route: 062
     Dates: start: 20120625
  10. YOKUKAN-SAN [Concomitant]
     Dosage: 2.5 G, 1X/DAY
     Route: 048
     Dates: start: 20121026, end: 20121205
  11. NEOPHAGEN C [Concomitant]
     Dosage: UNK
     Route: 048
     Dates: start: 20121016
  12. MAGMITT [Concomitant]
     Dosage: UNK

REACTIONS (5)
  - Liver function test abnormal [Recovering/Resolving]
  - Blood alkaline phosphatase increased [Recovering/Resolving]
  - Blood lactate dehydrogenase increased [Recovering/Resolving]
  - Gamma-glutamyltransferase increased [Recovering/Resolving]
  - Malaise [Unknown]
